FAERS Safety Report 6544904-2 (Version None)
Quarter: 2010Q1

REPORT INFORMATION
  Report Type: 
  Country: None (occurrence: None)
  Receive Date: 20100121
  Receipt Date: 20100115
  Transmission Date: 20100710
  Serious: Yes (Hospitalization)
  Sender: FDA-Public Use
  Company Number: FR-WYE-G05347310

PATIENT
  Sex: Female

DRUGS (3)
  1. EFFEXOR [Suspect]
     Indication: DEPRESSION
     Route: 048
  2. TYROSINE [Concomitant]
     Indication: HYPOTHYROIDISM
     Route: 048
  3. ASPRO [Suspect]
     Indication: HEADACHE
     Dosage: 1 G TOTAL DAILY
     Route: 048
     Dates: end: 20090113

REACTIONS (5)
  - BLOOD PRESSURE DECREASED [None]
  - GASTRIC ULCER HAEMORRHAGE [None]
  - IRON DEFICIENCY ANAEMIA [None]
  - PRESYNCOPE [None]
  - TACHYCARDIA [None]
